FAERS Safety Report 10368310 (Version 1)
Quarter: 2014Q3

REPORT INFORMATION
  Report Type: Spontaneous
  Country: US (occurrence: US)
  Receive Date: 20140807
  Receipt Date: 20140807
  Transmission Date: 20150326
  Serious: No
  Sender: FDA-Public Use
  Company Number: US-PFIZER INC-2014219261

PATIENT
  Age: 50 Year
  Sex: Male

DRUGS (5)
  1. PLAVIX [Suspect]
     Active Substance: CLOPIDOGREL BISULFATE
     Dosage: UNK
  2. LISINOPRIL. [Concomitant]
     Active Substance: LISINOPRIL
     Indication: HYPERTENSION
     Dosage: UNK
  3. LIPITOR [Suspect]
     Active Substance: ATORVASTATIN CALCIUM
     Dosage: 20 MG, 1X/DAY
  4. LIPITOR [Suspect]
     Active Substance: ATORVASTATIN CALCIUM
     Indication: BLOOD CHOLESTEROL
     Dosage: 40 MG, 1X/DAY
     Route: 048
     Dates: start: 2007
  5. NIACIN. [Suspect]
     Active Substance: NIACIN
     Dosage: UNK

REACTIONS (6)
  - Muscular weakness [Unknown]
  - Drug ineffective [Unknown]
  - Tenderness [Unknown]
  - Myalgia [Unknown]
  - Blood glucose increased [Unknown]
  - Arthralgia [Unknown]

NARRATIVE: CASE EVENT DATE: 201405
